FAERS Safety Report 19285916 (Version 1)
Quarter: 2021Q2

REPORT INFORMATION
  Report Type: Report from Study
  Country: None (occurrence: DE)
  Receive Date: 20210521
  Receipt Date: 20210521
  Transmission Date: 20210717
  Serious: Yes (Hospitalization)
  Sender: FDA-Public Use
  Company Number: DE-ABBVIE-21K-062-3915463-00

PATIENT
  Age: 45 Year
  Sex: Female

DRUGS (3)
  1. SALOFALK [Concomitant]
     Indication: CROHN^S DISEASE
     Dates: start: 2008
  2. AZATHIOPRINE. [Concomitant]
     Active Substance: AZATHIOPRINE
     Indication: CROHN^S DISEASE
     Route: 048
     Dates: start: 2008
  3. HUMIRA [Suspect]
     Active Substance: ADALIMUMAB
     Indication: CROHN^S DISEASE
     Route: 058
     Dates: start: 20170314, end: 201807

REACTIONS (2)
  - Colonoscopy [Recovered/Resolved]
  - Antibody test positive [Not Recovered/Not Resolved]

NARRATIVE: CASE EVENT DATE: 201808
